FAERS Safety Report 5163352-3 (Version None)
Quarter: 2006Q4

REPORT INFORMATION
  Report Type: 
  Country: None (occurrence: None)
  Receive Date: 20061121
  Receipt Date: 20061024
  Transmission Date: 20070319
  Serious: Yes (Death)
  Sender: FDA-Public Use
  Company Number: PAR_1002_2006

PATIENT
  Age: 27 Year

DRUGS (1)
  1. VALPROIC ACID [Suspect]
     Dosage: DF PO
     Route: 048

REACTIONS (8)
  - ANION GAP INCREASED [None]
  - ATRIAL FIBRILLATION [None]
  - COMA [None]
  - COMPLETED SUICIDE [None]
  - HYPOTENSION [None]
  - PANCREATITIS ACUTE [None]
  - POISONING [None]
  - RENAL FAILURE ACUTE [None]
